FAERS Safety Report 7503225-1 (Version None)
Quarter: 2011Q2

REPORT INFORMATION
  Report Type: 
  Country: None (occurrence: None)
  Receive Date: 20110525
  Receipt Date: 20110517
  Transmission Date: 20111010
  Serious: Yes (Hospitalization, Other)
  Sender: FDA-Public Use
  Company Number: US-JNJFOC-20110505332

PATIENT
  Sex: Male
  Weight: 99.79 kg

DRUGS (12)
  1. LEVAQUIN [Suspect]
     Route: 048
     Dates: start: 20110201, end: 20110201
  2. LEVAQUIN [Suspect]
     Route: 048
     Dates: start: 20110101, end: 20110101
  3. LEVAQUIN [Suspect]
     Indication: PNEUMONIA
     Route: 048
     Dates: start: 20101101, end: 20101101
  4. LEVAQUIN [Suspect]
     Route: 048
     Dates: start: 20110301, end: 20110301
  5. LEVAQUIN [Suspect]
     Route: 048
     Dates: start: 20110101, end: 20110101
  6. LEVAQUIN [Suspect]
     Route: 048
     Dates: start: 20020101, end: 20020101
  7. LEVAQUIN [Suspect]
     Indication: BRONCHITIS
     Route: 048
     Dates: start: 20101201, end: 20101201
  8. LEVAQUIN [Suspect]
     Route: 048
     Dates: start: 20101101, end: 20101101
  9. LEVAQUIN [Suspect]
     Route: 048
     Dates: start: 20020101, end: 20020101
  10. LEVAQUIN [Suspect]
     Route: 048
     Dates: start: 20101201, end: 20101201
  11. LEVAQUIN [Suspect]
     Route: 048
     Dates: start: 20110301, end: 20110301
  12. LEVAQUIN [Suspect]
     Route: 048
     Dates: start: 20110201, end: 20110201

REACTIONS (3)
  - CORONARY ARTERY OCCLUSION [None]
  - INFLUENZA [None]
  - HYPOAESTHESIA [None]
